FAERS Safety Report 10013990 (Version 2)
Quarter: 2014Q1

REPORT INFORMATION
  Report Type: Spontaneous
  Country: JP (occurrence: JP)
  Receive Date: 20140317
  Receipt Date: 20140317
  Transmission Date: 20141002
  Serious: Yes (Hospitalization)
  Sender: FDA-Public Use
  Company Number: JP-JNJFOC-20140301714

PATIENT
  Age: 8 Decade
  Sex: Male

DRUGS (2)
  1. RISPERDAL [Suspect]
     Indication: RESTLESSNESS
     Route: 048
     Dates: start: 201311, end: 201402
  2. YOKUKAN-SAN [Concomitant]
     Route: 048

REACTIONS (5)
  - Altered state of consciousness [Recovered/Resolved]
  - Miosis [Recovered/Resolved]
  - Dehydration [Unknown]
  - Pyrexia [Unknown]
  - Off label use [Unknown]
